FAERS Safety Report 11079450 (Version 3)
Quarter: 2015Q3

REPORT INFORMATION
  Report Type: Spontaneous
  Country: US (occurrence: US)
  Receive Date: 20150430
  Receipt Date: 20150722
  Transmission Date: 20151125
  Serious: No
  Sender: FDA-Public Use
  Company Number: US-GLAXOSMITHKLINE-US2015GSK044123

PATIENT
  Sex: Male
  Weight: 87.75 kg

DRUGS (1)
  1. TANZEUM [Suspect]
     Active Substance: ALBIGLUTIDE
     Indication: BLOOD GLUCOSE INCREASED
     Dosage: 30 MG, U
     Dates: start: 20150306, end: 20150331

REACTIONS (2)
  - Drug administration error [Unknown]
  - Drug ineffective [Recovering/Resolving]
